FAERS Safety Report 9399056 (Version 1)
Quarter: 2013Q3

REPORT INFORMATION
  Report Type: Spontaneous
  Country: CO (occurrence: CO)
  Receive Date: 20130715
  Receipt Date: 20130715
  Transmission Date: 20140515
  Serious: Yes (Other)
  Sender: FDA-Public Use
  Company Number: CO-AMGEN-COLSP2013048844

PATIENT
  Age: 65 Year
  Sex: Female

DRUGS (8)
  1. ENBREL [Suspect]
     Indication: RHEUMATOID ARTHRITIS
     Dosage: 50 MG, WEEKLY
     Route: 058
     Dates: start: 2012
  2. METOPROLOL [Concomitant]
     Indication: HYPERTENSION
     Dosage: 100 MG, EVERY 12 HRS
     Route: 048
     Dates: start: 2008
  3. LOSARTAN [Concomitant]
     Indication: HYPERTENSION
     Dosage: 100 MG, 1X/DAY
     Route: 048
     Dates: start: 2008
  4. CALCITRIOL [Concomitant]
     Indication: OSTEOPOROSIS
     Dosage: UNK UNK, QD
     Route: 048
     Dates: start: 2008
  5. CALCIUM WITH VITAMIN D             /01233101/ [Concomitant]
     Indication: OSTEOPOROSIS
     Dosage: UNK UNK, QD
     Route: 048
     Dates: start: 2008
  6. ACETAMINOPHEN [Concomitant]
     Indication: PAIN
     Dosage: UNK UNK, QD
     Route: 048
     Dates: start: 2008
  7. LANSOPRAZOLE [Concomitant]
     Indication: GASTRITIS
     Dosage: UNK UNK, QD
     Route: 048
     Dates: start: 2008
  8. LANTUS [Concomitant]
     Indication: DIABETES MELLITUS
     Dosage: 20 UL, 1X/DAY
     Route: 058
     Dates: start: 2012

REACTIONS (3)
  - Arthropathy [Recovered/Resolved]
  - Pain in extremity [Unknown]
  - Drug ineffective [Unknown]
